FAERS Safety Report 6485459-0 (Version None)
Quarter: 2009Q4

REPORT INFORMATION
  Report Type: 
  Country: None (occurrence: None)
  Receive Date: 20091204
  Receipt Date: 20090730
  Transmission Date: 20100525
  Serious: Yes (Hospitalization, Disabling)
  Sender: FDA-Public Use
  Company Number: 002350

PATIENT
  Sex: Male
  Weight: 83 kg

DRUGS (16)
  1. NEUPRO [Suspect]
     Indication: PARKINSON'S DISEASE
     Dosage: (8 MG QD TRANSDERMAL)
     Route: 062
     Dates: start: 20090130, end: 20090227
  2. ROPINIROLE [Suspect]
     Indication: PARKINSON'S DISEASE
     Dosage: (2 MG QD) ; (4 MG QD) ; (6 MG QD) ; (8 MG QD) ; (10 MG QD)
     Dates: start: 20080911, end: 20080912
  3. ROPINIROLE [Suspect]
     Indication: PARKINSON'S DISEASE
     Dosage: (2 MG QD) ; (4 MG QD) ; (6 MG QD) ; (8 MG QD) ; (10 MG QD)
     Dates: start: 20080913, end: 20080914
  4. ROPINIROLE [Suspect]
     Indication: PARKINSON'S DISEASE
     Dosage: (2 MG QD) ; (4 MG QD) ; (6 MG QD) ; (8 MG QD) ; (10 MG QD)
     Dates: start: 20080915, end: 20081113
  5. ROPINIROLE [Suspect]
     Indication: PARKINSON'S DISEASE
     Dosage: (2 MG QD) ; (4 MG QD) ; (6 MG QD) ; (8 MG QD) ; (10 MG QD)
     Dates: start: 20081114, end: 20081117
  6. ROPINIROLE [Suspect]
     Indication: PARKINSON'S DISEASE
     Dosage: (2 MG QD) ; (4 MG QD) ; (6 MG QD) ; (8 MG QD) ; (10 MG QD)
     Dates: start: 20081118, end: 20090128
  7. AZILECT [Suspect]
     Indication: PARKINSON'S DISEASE
     Dosage: (1 MG QD)
     Dates: start: 20080911, end: 20081118
  8. PRAMIPEXOLE DIHYDROCHLORIDE [Suspect]
     Dosage: SEE IMAGE
     Dates: start: 20090427, end: 20090429
  9. PRAMIPEXOLE DIHYDROCHLORIDE [Suspect]
     Dosage: SEE IMAGE
     Dates: start: 20090501, end: 20090502
  10. PRAMIPEXOLE DIHYDROCHLORIDE [Suspect]
     Dosage: SEE IMAGE
     Dates: start: 20090503, end: 20090526
  11. OPIPRAMOL [Concomitant]
  12. ASPIRIN [Concomitant]
  13. DELIX [Concomitant]
  14. METFORMIN HYDROCHLORIDE [Concomitant]
  15. QUETIAPINE [Concomitant]
  16. SEROQUEL [Concomitant]

REACTIONS (17)
  - ABNORMAL DREAMS [None]
  - ANXIETY [None]
  - BRADYPHRENIA [None]
  - CHILLS [None]
  - COGNITIVE DISORDER [None]
  - DECREASED ACTIVITY [None]
  - DEPRESSION [None]
  - DIZZINESS [None]
  - DRUG EFFECT DECREASED [None]
  - DRUG INTOLERANCE [None]
  - HALLUCINATION [None]
  - MOOD ALTERED [None]
  - NIGHTMARE [None]
  - PYREXIA [None]
  - RESTLESSNESS [None]
  - SYNCOPE [None]
  - TREMOR [None]
